FAERS Safety Report 21078316 (Version 1)
Quarter: 2022Q3

REPORT INFORMATION
  Report Type: Spontaneous
  Country: US (occurrence: US)
  Receive Date: 20220713
  Receipt Date: 20220713
  Transmission Date: 20221026
  Serious: Yes (Life-Threatening, Hospitalization)
  Sender: FDA-Public Use
  Company Number: US-SA-2019SA312965

PATIENT
  Age: 15 Year
  Sex: Male

DRUGS (1)
  1. DILTIAZEM HYDROCHLORIDE [Suspect]
     Active Substance: DILTIAZEM HYDROCHLORIDE
     Indication: Product used for unknown indication
     Route: 065

REACTIONS (10)
  - Respiratory failure [Unknown]
  - Mental status changes [Unknown]
  - Hyperkalaemia [Unknown]
  - Cardioplegia [Unknown]
  - Seizure [Unknown]
  - Rhabdomyolysis [Unknown]
  - Arrhythmia [Unknown]
  - Acute kidney injury [Unknown]
  - Cardiac arrest [Unknown]
  - Intentional overdose [Recovered/Resolved]
